FAERS Safety Report 7495466-7 (Version None)
Quarter: 2011Q2

REPORT INFORMATION
  Report Type: 
  Country: None (occurrence: None)
  Receive Date: 20110513
  Receipt Date: 20110510
  Transmission Date: 20111010
  Serious: Yes (Other)
  Sender: FDA-Public Use
  Company Number: 2011SP014267

PATIENT
  Age: 39 Year
  Sex: Female

DRUGS (1)
  1. PHENPROCOUMON (PHENPROCOUMON /00034501/) [Suspect]
     Indication: PRODUCT USED FOR UNKNOWN INDICATION

REACTIONS (15)
  - FOETAL DISORDER [None]
  - CAESAREAN SECTION [None]
  - GENERALISED OEDEMA [None]
  - INTENTIONAL DRUG MISUSE [None]
  - OEDEMA [None]
  - ASCITES [None]
  - COAGULOPATHY [None]
  - CARDIO-RESPIRATORY ARREST NEONATAL [None]
  - PREGNANCY [None]
  - INDUCED ABORTION FAILED [None]
  - DRUG EXPOSURE DURING PREGNANCY [None]
  - TOXICITY TO VARIOUS AGENTS [None]
  - PLACENTAL DISORDER [None]
  - CARDIOMEGALY [None]
  - THROMBOCYTOPENIA [None]
